FAERS Safety Report 10728854 (Version 3)
Quarter: 2015Q2

REPORT INFORMATION
  Report Type: Spontaneous
  Country: US (occurrence: US)
  Receive Date: 20150122
  Receipt Date: 20150407
  Transmission Date: 20150821
  Serious: Yes (Hospitalization, Other)
  Sender: FDA-Public Use
  Company Number: US-BEH-2015047932

PATIENT
  Sex: Female
  Weight: 59 kg

DRUGS (36)
  1. ZEMAIRA [Suspect]
     Active Substance: .ALPHA.1-PROTEINASE INHIBITOR HUMAN
     Indication: ALPHA-1 ANTI-TRYPSIN DEFICIENCY
     Route: 042
  2. SINGULAIR [Concomitant]
     Active Substance: MONTELUKAST SODIUM
  3. CITRACAL D [Concomitant]
  4. ZEMAIRA [Suspect]
     Active Substance: .ALPHA.1-PROTEINASE INHIBITOR HUMAN
     Route: 042
     Dates: start: 20150106
  5. SODIUM CHLORIDE. [Concomitant]
     Active Substance: SODIUM CHLORIDE
  6. ADVAIR HFA [Concomitant]
     Active Substance: FLUTICASONE PROPIONATE\SALMETEROL XINAFOATE
  7. CO-ENZYME Q-10 [Concomitant]
  8. XOPENEX [Concomitant]
     Active Substance: LEVALBUTEROL HYDROCHLORIDE
  9. SOLU-MEDROL [Concomitant]
     Active Substance: METHYLPREDNISOLONE SODIUM SUCCINATE
  10. LEXAPRO [Concomitant]
     Active Substance: ESCITALOPRAM OXALATE
  11. SPIRIVA [Concomitant]
     Active Substance: TIOTROPIUM BROMIDE MONOHYDRATE
  12. BENADRYL [Concomitant]
     Active Substance: DIPHENHYDRAMINE HYDROCHLORIDE
  13. OXYGEN. [Concomitant]
     Active Substance: OXYGEN
  14. BUDESONIDE. [Concomitant]
     Active Substance: BUDESONIDE
  15. VITAMIN C [Concomitant]
     Active Substance: ASCORBIC ACID
  16. MULTIVITAMIN [Concomitant]
     Active Substance: VITAMINS
  17. ROPINIROLE. [Concomitant]
     Active Substance: ROPINIROLE
  18. ALPRAZOLAM. [Concomitant]
     Active Substance: ALPRAZOLAM
  19. ACYCLOVIR. [Concomitant]
     Active Substance: ACYCLOVIR
  20. MELATONIN [Concomitant]
     Active Substance: MELATONIN
  21. ZEMAIRA [Suspect]
     Active Substance: .ALPHA.1-PROTEINASE INHIBITOR HUMAN
     Route: 042
  22. TRAMADOL [Concomitant]
     Active Substance: TRAMADOL
  23. MAGNESIUM [Concomitant]
     Active Substance: MAGNESIUM
  24. AMBIEN [Concomitant]
     Active Substance: ZOLPIDEM TARTRATE
  25. SYNTHROID [Concomitant]
     Active Substance: LEVOTHYROXINE SODIUM
  26. NEXIUM [Concomitant]
     Active Substance: ESOMEPRAZOLE MAGNESIUM
  27. METOCLOPRAMIDE. [Concomitant]
     Active Substance: METOCLOPRAMIDE
  28. MUCINEX ER [Concomitant]
  29. CLOTRIMAZOLE. [Concomitant]
     Active Substance: CLOTRIMAZOLE
  30. EPINEPHRINE. [Concomitant]
     Active Substance: EPINEPHRINE
  31. HEPARIN [Concomitant]
     Active Substance: HEPARIN SODIUM
  32. LMX [Concomitant]
     Active Substance: LIDOCAINE
  33. COMBIPATCH [Concomitant]
     Active Substance: ESTRADIOL\NORETHINDRONE ACETATE
  34. CLONAZEPAM. [Concomitant]
     Active Substance: CLONAZEPAM
  35. FEXOFENADINE [Concomitant]
     Active Substance: FEXOFENADINE\FEXOFENADINE HYDROCHLORIDE
  36. TUSSIONEX PENNKINETIC [Concomitant]
     Active Substance: CHLORPHENIRAMINE\HYDROCODONE

REACTIONS (5)
  - Transient ischaemic attack [Recovered/Resolved]
  - Aphasia [Recovered/Resolved]
  - Swollen tongue [Recovered/Resolved]
  - Dyspnoea [Recovered/Resolved]
  - Memory impairment [Recovered/Resolved]
